FAERS Safety Report 6840190-4 (Version None)
Quarter: 2010Q3

REPORT INFORMATION
  Report Type: 
  Country: None (occurrence: None)
  Receive Date: 20100713
  Receipt Date: 20100713
  Transmission Date: 20110219
  Serious: Yes (Life-Threatening, Hospitalization)
  Sender: FDA-Public Use
  Company Number: None

PATIENT
  Age: 64 Year
  Sex: Male
  Weight: 73 kg

DRUGS (1)
  1. ENOXAPARIN SODIUM [Suspect]
     Indication: ATRIAL FLUTTER
     Dosage: 80MG  DAILY SQ
     Route: 058
     Dates: start: 20100610, end: 20100612

REACTIONS (7)
  - CARDIAC FLUTTER [None]
  - DRUG INEFFECTIVE [None]
  - DYSPNOEA [None]
  - ENDOTRACHEAL INTUBATION COMPLICATION [None]
  - HAEMOGLOBIN DECREASED [None]
  - HAEMOTHORAX [None]
  - RENAL IMPAIRMENT [None]
